FAERS Safety Report 6607329-7 (Version None)
Quarter: 2010Q1

REPORT INFORMATION
  Report Type: 
  Country: None (occurrence: None)
  Receive Date: 20100301
  Receipt Date: 20100218
  Transmission Date: 20100710
  Serious: Yes (Hospitalization, Other)
  Sender: FDA-Public Use
  Company Number: US-BIOGENIDEC-2009BI018016

PATIENT
  Age: 56 Year
  Sex: Female

DRUGS (1)
  1. TYSABRI [Suspect]
     Indication: CROHN'S DISEASE
     Route: 042
     Dates: start: 20081230, end: 20090507

REACTIONS (6)
  - CHILLS [None]
  - COLECTOMY [None]
  - DYSPNOEA [None]
  - FEMALE GENITAL TRACT FISTULA [None]
  - INFUSION RELATED REACTION [None]
  - RESECTION OF RECTUM [None]
